FAERS Safety Report 8816477 (Version 1)
Quarter: 2012Q4

REPORT INFORMATION
  Report Type: Spontaneous
  Country: US (occurrence: None)
  Receive Date: 20120927
  Receipt Date: 20120927
  Transmission Date: 20130627
  Serious: Yes (Other)
  Sender: FDA-Public Use
  Company Number: 2012HGS-003712

PATIENT
  Age: 51 Year
  Sex: Female
  Weight: 79.83 kg

DRUGS (25)
  1. BENLYSTA [Suspect]
     Indication: SYSTEMIC LUPUS ERYTHEMATOSUS
     Dosage: 1 in 28 D, intravenous drip
     Route: 041
     Dates: start: 20120327, end: 20120327
  2. ARAVA (LEFLUNOMIDE) (LEFLUNOMIDE) [Concomitant]
  3. PLAQUENIL (HYDROXYCHLOROQUINE SULFATE) (HYDROXYCHLOROQUINE SULFATE) [Concomitant]
  4. MEDROL (METHYLPREDNISOLONE) (METHYLPREDNISOLONE) [Concomitant]
  5. SYNTHROID (LEVOTHYROXINE SODIUM) (LEVOTHYROXINE SODIUM) [Concomitant]
  6. LISINOPRIL (LISINOPRIL DIHYDRATE) (LISINOPRIL DIHYDRATE) [Concomitant]
  7. LASIX (FUROSEMIDE) (FUROSEMIDE) [Concomitant]
  8. PROCARDIA XL (NIFEDIPINE) (NIFEDIPINE) [Concomitant]
  9. POTASSIUM CHLORIDE (POTASSIUM CHLORIDE) (POTASSIUM CHLORIDE) [Concomitant]
  10. PRILOSEC (OMEPRAZOLE) (OMEPRAZOLE) [Concomitant]
  11. ZANTAC (RANITIDINE HYDROCHLORIDE) (RANITIDINE HYDROCHLORIDE) [Concomitant]
  12. EVOXAC (CEVIMELINE HYDROCHLORIDE) (CEVIMELINE HYDROCHLORIDE) [Concomitant]
  13. IMODIUM (LOPERAMIDE HYDROCHLORIDE) (LOPERAMIDE HYDROCHLORIDE) [Concomitant]
  14. CITRUCEL (METHYLCELLULOSE) (METHYLCELLULOSE) [Concomitant]
  15. ESTRING (ESTRADIOL) (ESTRADIOL) [Concomitant]
  16. AMBIEN CR(ZOLPIDEM TARTRATE) (ZOLPIDEM TARTRATE) [Concomitant]
  17. GABAPENTIN (GABAPENTIN) (GABAPENTIN) [Concomitant]
  18. VOLTAREN GEL 1% (DICLOFENAC SODIUM) (DICLOFENAC SODIUM) [Concomitant]
  19. LORATADINE (LORATADINE)(LORATADINE) [Concomitant]
  20. VITAMIN D (ERGOCALCIFEROL0 (ERGOCALCIFEROL) [Concomitant]
  21. REQUIP (ROPINIROLE HYDROCHLORIDE) (ROPINIROLE HYDROCHLORIDE) [Concomitant]
  22. ZOLOFT (SERTRALINE HYDROCHLORIDE) (SERTRALINE HYDROCHLORIDE) [Concomitant]
  23. ATIVAN (LORAZEPAM) (LORAZEPAM) [Concomitant]
  24. MULTIVITAMIN (VIGRAN) (ERGOCALCIFEROL, ASCORBIC ACID, PYRIDOXINE HYDROCHLORIDE, THIAMINE HYDROCHLORIDE, RETINOL, RIBOFLAVIN, NICOTINAMIDE, CALCIUM PANTOTHENATE) [Concomitant]
  25. XANAX (ALPRAZOLAM) (ALPRAZOLAM) [Concomitant]

REACTIONS (6)
  - Systemic lupus erythematosus [None]
  - Hypoaesthesia [None]
  - Hypoaesthesia [None]
  - Hypoaesthesia [None]
  - Paraesthesia [None]
  - Condition aggravated [None]
